FAERS Safety Report 5157028-6 (Version None)
Quarter: 2006Q4

REPORT INFORMATION
  Report Type: 
  Country: None (occurrence: None)
  Receive Date: 20061127
  Receipt Date: 20061114
  Transmission Date: 20070319
  Serious: Yes (Death)
  Sender: FDA-Public Use
  Company Number: JP-JNJFOC-20061103282

PATIENT
  Sex: Female

DRUGS (2)
  1. ITRIZOLE [Suspect]
     Indication: NAIL TINEA
     Route: 048
  2. RIZE [Concomitant]
     Indication: INSOMNIA
     Route: 048

REACTIONS (5)
  - BONE MARROW FAILURE [None]
  - FEELING ABNORMAL [None]
  - HISTIOCYTOSIS HAEMATOPHAGIC [None]
  - MYELOFIBROSIS [None]
  - PLEURAL EFFUSION [None]
